FAERS Safety Report 7234830 (Version 9)
Quarter: 2013Q4

REPORT INFORMATION
  Report Type: Spontaneous
  Country: US (occurrence: US)
  Receive Date: 20091231
  Receipt Date: 20131007
  Transmission Date: 20140711
  Serious: Yes (Hospitalization, Other)
  Sender: FDA-Public Use
  Company Number: US-BIOGENIDEC-2009BI042169

PATIENT
  Age: 32 Year
  Sex: Female
  Weight: 53 kg

DRUGS (11)
  1. AVONEX [Suspect]
     Indication: MULTIPLE SCLEROSIS
     Route: 030
     Dates: start: 20020906, end: 20040301
  2. AVONEX [Suspect]
     Indication: MULTIPLE SCLEROSIS
     Route: 030
     Dates: end: 20080101
  3. AVONEX [Suspect]
     Indication: MULTIPLE SCLEROSIS
     Route: 030
     Dates: start: 20090228, end: 20100924
  4. AVONEX [Suspect]
     Indication: MULTIPLE SCLEROSIS
     Route: 030
     Dates: start: 20110422, end: 2011
  5. AVONEX [Suspect]
     Indication: MULTIPLE SCLEROSIS
     Route: 030
     Dates: start: 201107
  6. COPAXONE [Concomitant]
  7. REBIF [Concomitant]
     Indication: MULTIPLE SCLEROSIS
     Dates: start: 20100924, end: 20110422
  8. LYRICA [Concomitant]
     Indication: TRIGEMINAL NEURALGIA
  9. NEURONTIN [Concomitant]
     Indication: TRIGEMINAL NEURALGIA
  10. KEPPRA [Concomitant]
     Indication: TRIGEMINAL NEURALGIA
  11. TEGRETOL [Concomitant]
     Indication: TRIGEMINAL NEURALGIA

REACTIONS (37)
  - Pancreatitis [Recovered/Resolved]
  - Gallbladder non-functioning [Recovered/Resolved]
  - Radiculotomy [Recovered/Resolved]
  - Abasia [Recovered/Resolved]
  - Fatigue [Unknown]
  - Obesity [Recovered/Resolved]
  - Pelvic sepsis [Recovered/Resolved]
  - Abdominal abscess [Recovered/Resolved]
  - Intestinal perforation [Recovered/Resolved]
  - Aphasia [Recovered/Resolved]
  - Mental impairment [Recovered/Resolved]
  - Procedural pain [Recovered/Resolved]
  - Overdose [Recovered/Resolved]
  - Ovarian cyst [Recovered/Resolved]
  - Pancreatic cyst [Recovered/Resolved]
  - Abscess rupture [Recovered/Resolved]
  - Localised oedema [Recovered/Resolved]
  - Vitamin B12 decreased [Unknown]
  - Abdominal pain [Recovered/Resolved]
  - Sepsis [Recovered/Resolved]
  - Fall [Recovered/Resolved]
  - Ascites [Unknown]
  - Gallbladder disorder [Recovered/Resolved]
  - Toxicity to various agents [Recovered/Resolved]
  - Grand mal convulsion [Recovered/Resolved]
  - Convulsion [Recovered/Resolved]
  - Hernia [Not Recovered/Not Resolved]
  - Fluid retention [Not Recovered/Not Resolved]
  - Drug abuse [Unknown]
  - Post procedural complication [Not Recovered/Not Resolved]
  - Trigeminal neuralgia [Unknown]
  - Coordination abnormal [Recovered/Resolved]
  - Speech disorder [Recovered/Resolved]
  - Loss of consciousness [Recovered/Resolved]
  - Muscle spasms [Recovered/Resolved]
  - Influenza like illness [Recovered/Resolved]
  - Drug hypersensitivity [Recovered/Resolved]
